FAERS Safety Report 10238836 (Version 4)
Quarter: 2014Q3

REPORT INFORMATION
  Report Type: Spontaneous
  Country: US (occurrence: None)
  Receive Date: 20140612
  Receipt Date: 20140822
  Transmission Date: 20150326
  Serious: Yes (Death, Hospitalization, Other)
  Sender: FDA-Public Use
  Company Number: US-JNJFOC-20140514140

PATIENT
  Age: 69 Year
  Sex: Male
  Weight: 61 kg

DRUGS (1)
  1. DECITABINE. [Suspect]
     Active Substance: DECITABINE
     Indication: ACUTE MYELOID LEUKAEMIA
     Dosage: 20 MG/M2, INTRAVENOUS?
     Route: 042
     Dates: start: 20130102

REACTIONS (10)
  - Acute myeloid leukaemia [None]
  - Sepsis [None]
  - Pneumonitis [None]
  - Renal failure acute [None]
  - Leukaemia recurrent [None]
  - Pneumonia [None]
  - General physical health deterioration [None]
  - Lung infection [None]
  - Acute myeloid leukaemia recurrent [None]
  - Respiratory failure [None]
